FAERS Safety Report 6535010-1 (Version None)
Quarter: 2010Q1

REPORT INFORMATION
  Report Type: 
  Country: None (occurrence: None)
  Receive Date: 20100111
  Receipt Date: 20100111
  Transmission Date: 20100710
  Serious: Yes (Hospitalization)
  Sender: FDA-Public Use
  Company Number: None

PATIENT
  Age: 60 Year
  Sex: Female
  Weight: 61.5 kg

DRUGS (11)
  1. ABILIFY [Suspect]
     Indication: BIPOLAR DISORDER
     Dosage: 10MG PO QD; 20MG PO QD
     Route: 048
     Dates: start: 20030101, end: 20071130
  2. ABILIFY [Suspect]
     Indication: BIPOLAR DISORDER
     Dosage: 10MG PO QD; 20MG PO QD
     Route: 048
     Dates: start: 20071130
  3. ASPIRIN [Concomitant]
  4. LORATADINE [Concomitant]
  5. VICODIN [Concomitant]
  6. PREMARIN [Concomitant]
  7. MECLIZINE [Concomitant]
  8. DIPHENHYDRAMINE [Concomitant]
  9. NEXIUM [Concomitant]
  10. METOPROLOL [Concomitant]
  11. AMBIEN [Concomitant]

REACTIONS (1)
  - FEMORAL ARTERIAL STENOSIS [None]
